FAERS Safety Report 17899271 (Version 1)
Quarter: 2020Q2

REPORT INFORMATION
  Report Type: Spontaneous
  Country: US (occurrence: US)
  Receive Date: 20200616
  Receipt Date: 20200616
  Transmission Date: 20200714
  Serious: Yes (Other)
  Sender: FDA-Public Use
  Company Number: US-ROCHE-2618634

PATIENT
  Age: 54 Year
  Sex: Female
  Weight: 60.38 kg

DRUGS (2)
  1. NUVIGIL [Concomitant]
     Active Substance: ARMODAFINIL
  2. OCREVUS [Suspect]
     Active Substance: OCRELIZUMAB
     Indication: RELAPSING-REMITTING MULTIPLE SCLEROSIS
     Dosage: 300 MG ON DAY 1 AND DAY 15, THEN 600 MG EVERY 6 MONTHS?ON 02/MAR/2019, 07/SEP/2019, 07/MAR/2020, SHE
     Route: 042
     Dates: start: 201809

REACTIONS (1)
  - Crohn^s disease [Not Recovered/Not Resolved]

NARRATIVE: CASE EVENT DATE: 201909
